FAERS Safety Report 25841868 (Version 3)
Quarter: 2025Q4

REPORT INFORMATION
  Report Type: Spontaneous
  Country: EU (occurrence: EU)
  Receive Date: 20250924
  Receipt Date: 20251112
  Transmission Date: 20260117
  Serious: No
  Sender: PFIZER
  Company Number: EU-PFIZER INC-PV202500113254

PATIENT
  Age: 11 Year
  Sex: Male
  Weight: 43 kg

DRUGS (3)
  1. GENOTROPIN [Suspect]
     Active Substance: SOMATROPIN
     Indication: Growth hormone deficiency
     Dosage: 8 MG (IN TOTAL IN A WEEK)
     Route: 058
     Dates: start: 20231206
  2. LEVOTHYROXINE [Concomitant]
     Active Substance: LEVOTHYROXINE
     Indication: Hypothyroidism
     Dosage: 25 UG, ALTERNATE DAY (TUESDAY-THURSDAY-SATURDAY-SUNDAY)
  3. LEVOTHYROXINE [Concomitant]
     Active Substance: LEVOTHYROXINE
     Dosage: 50 UG, ALTERNATE DAY (MONDAY-WEDNESDAY-FRIDAY)

REACTIONS (1)
  - Device breakage [Unknown]

NARRATIVE: CASE EVENT DATE: 20250917
